FAERS Safety Report 4731417-3 (Version None)
Quarter: 2005Q3

REPORT INFORMATION
  Report Type: 
  Country: None (occurrence: None)
  Receive Date: 20050801
  Receipt Date: 20050801
  Transmission Date: 20060218
  Serious: Yes (Disabling, Other)
  Sender: FDA-Public Use
  Company Number: None

PATIENT
  Age: 37 Year
  Sex: Female
  Weight: 58.0604 kg

DRUGS (1)
  1. EFFEXOR [Suspect]
     Dosage: 35 ML DAILY 75 ML DAILY  150 ML DAILY
     Dates: start: 20050215, end: 20050726

REACTIONS (6)
  - DRUG INEFFECTIVE [None]
  - DRUG WITHDRAWAL SYNDROME [None]
  - HYPOTHYROIDISM [None]
  - IATROGENIC INJURY [None]
  - PERSONALITY CHANGE [None]
  - PHARMACEUTICAL PRODUCT COMPLAINT [None]
